FAERS Safety Report 8865624 (Version 1)
Quarter: 2012Q4

REPORT INFORMATION
  Report Type: 
  Country: US (occurrence: US)
  Receive Date: 20121024
  Receipt Date: 20121024
  Transmission Date: 20130627
  Serious: No
  Sender: FDA-Public Use
  Company Number: US-AMGEN-USASP2012003972

PATIENT
  Sex: Female

DRUGS (7)
  1. ENBREL [Suspect]
     Indication: PRODUCT USED FOR UNKNOWN INDICATION
     Dosage: 50 mg, qwk
     Route: 058
  2. AMBIEN CR [Concomitant]
     Dosage: 12.5 mg, UNK
  3. XANAX XR [Concomitant]
     Dosage: 1 mg, UNK
  4. SOMA [Concomitant]
     Dosage: 350 mg, UNK
  5. ZOCOR [Concomitant]
     Dosage: 40 mg, UNK
  6. METHOTREXATE [Concomitant]
     Dosage: 2.5 mg, UNK
  7. DIOVAN [Concomitant]
     Dosage: 160 mg, UNK

REACTIONS (1)
  - Dry eye [Unknown]
